FAERS Safety Report 5757815-7 (Version None)
Quarter: 2008Q2

REPORT INFORMATION
  Report Type: 
  Country: None (occurrence: None)
  Receive Date: 20080529
  Receipt Date: 20080520
  Transmission Date: 20081010
  Serious: Yes (Death)
  Sender: FDA-Public Use
  Company Number: TCI2008A02473

PATIENT
  Age: 61 Year
  Sex: Male

DRUGS (9)
  1. ACTOS [Suspect]
     Indication: TYPE 2 DIABETES MELLITUS
     Dosage: 15 MG (15 MG, 1 D) PER ORAL
     Route: 048
     Dates: start: 20070701, end: 20080501
  2. AMARYL [Concomitant]
  3. CRESTOR [Concomitant]
  4. ELPINAN (EPINASTINE HYDROCHLORIDE) [Concomitant]
  5. LASIX [Concomitant]
  6. ALDACTONE [Concomitant]
  7. UBEQUINON (UBIDECARENONE) [Concomitant]
  8. DYDRENE TAPE (GLYCERYL TRINITRATE) [Concomitant]
  9. NITRENAL (NITRENDIPINE) [Concomitant]

REACTIONS (1)
  - CARDIAC FAILURE [None]
